FAERS Safety Report 9584604 (Version 1)
Quarter: 2013Q4

REPORT INFORMATION
  Report Type: Spontaneous
  Country: US (occurrence: US)
  Receive Date: 20131002
  Receipt Date: 20131002
  Transmission Date: 20140711
  Serious: No
  Sender: FDA-Public Use
  Company Number: US-AMGEN-USASP2013053896

PATIENT
  Age: 48 Year
  Sex: Female
  Weight: 114.29 kg

DRUGS (19)
  1. ENBREL [Suspect]
     Indication: RHEUMATOID ARTHRITIS
     Dosage: 50 MG, QWK
     Route: 058
     Dates: start: 201304
  2. PHENERGAN                          /00033001/ [Concomitant]
     Dosage: 25 MG, UNK
  3. ATIVAN [Concomitant]
     Dosage: 1 MG, UNK
  4. PROTONIX [Concomitant]
     Dosage: 20 MG, UNK
  5. LASIX                              /00032601/ [Concomitant]
     Dosage: 20 MG, UNK
  6. ZOLOFT [Concomitant]
     Dosage: 50 MG, UNK
  7. METHOTREXATE [Concomitant]
     Dosage: 2.5 MG, UNK
  8. LIPITOR [Concomitant]
     Dosage: 20 MG, UNK
  9. NITROSTAT [Concomitant]
     Dosage: 0.3 MG, UNK
     Route: 060
  10. REGLAN                             /00041901/ [Concomitant]
     Dosage: 5 MG, UNK
  11. LISINOPRIL [Concomitant]
     Dosage: 10 MG, UNK
  12. POTCL [Concomitant]
     Dosage: 10 MEQ, UNK
  13. ZOFRAN                             /00955301/ [Concomitant]
     Dosage: 4 MG, UNK
  14. AMITRIPTYLIN [Concomitant]
     Dosage: 10 MG, UNK
  15. PLAVIX [Concomitant]
     Dosage: 75 MG, UNK
  16. ASPIRIN BUFFERED [Concomitant]
     Dosage: 325 MG, UNK
  17. PERCOCET                           /00446701/ [Concomitant]
     Dosage: 5/325 MG
  18. VITAMIN B12                        /00056201/ [Concomitant]
     Dosage: 1000 CR
  19. FOLIC ACID [Concomitant]
     Dosage: UNK

REACTIONS (1)
  - Injection site pain [Recovered/Resolved]
